FAERS Safety Report 6412254-0 (Version None)
Quarter: 2009Q4

REPORT INFORMATION
  Report Type: 
  Country: None (occurrence: None)
  Receive Date: 20091023
  Receipt Date: 20091013
  Transmission Date: 20100525
  Serious: Yes (Hospitalization)
  Sender: FDA-Public Use
  Company Number: FR-PFIZER INC-2009286176

PATIENT
  Age: 50 Year

DRUGS (1)
  1. CHAMPIX [Suspect]

REACTIONS (3)
  - ANXIETY [None]
  - DEPRESSION [None]
  - NEUROSIS [None]
